FAERS Safety Report 8788956 (Version 2)
Quarter: 2013Q4

REPORT INFORMATION
  Report Type: Spontaneous
  Country: US (occurrence: US)
  Receive Date: 20120915
  Receipt Date: 20131101
  Transmission Date: 20140711
  Serious: No
  Sender: FDA-Public Use
  Company Number: US-009507513-1209USA004002

PATIENT
  Age: 55 Year
  Sex: Female

DRUGS (4)
  1. JANUMET [Suspect]
     Indication: TYPE 2 DIABETES MELLITUS
     Dosage: 50MG SITAGLIPTIN PHOSPHATE (+) 1000MG METFORMIN HYDROCHLORIDE, BID
     Route: 048
     Dates: start: 2008
  2. VICTOZA [Concomitant]
  3. LISINOPRIL [Concomitant]
  4. TOPROL XL TABLETS [Concomitant]

REACTIONS (5)
  - Abdominal pain upper [Not Recovered/Not Resolved]
  - Piloerection [Not Recovered/Not Resolved]
  - Headache [Not Recovered/Not Resolved]
  - Diarrhoea [Not Recovered/Not Resolved]
  - Nausea [Not Recovered/Not Resolved]
